FAERS Safety Report 18603058 (Version 3)
Quarter: 2021Q1

REPORT INFORMATION
  Report Type: Spontaneous
  Country: US (occurrence: US)
  Receive Date: 20201210
  Receipt Date: 20210121
  Transmission Date: 20210419
  Serious: Yes (Other)
  Sender: FDA-Public Use
  Company Number: US-009507513-2012USA002146

PATIENT
  Age: 68 Year
  Sex: Female

DRUGS (3)
  1. KEYTRUDA [Suspect]
     Active Substance: PEMBROLIZUMAB
     Indication: NON-SMALL CELL LUNG CANCER
  2. PEMETREXED DOSIDIUM [Concomitant]
     Indication: NON-SMALL CELL LUNG CANCER
  3. CARBOPLATIN. [Concomitant]
     Active Substance: CARBOPLATIN
     Indication: NON-SMALL CELL LUNG CANCER

REACTIONS (1)
  - Immune-mediated pneumonitis [Recovered/Resolved]
